FAERS Safety Report 25435779 (Version 1)
Quarter: 2025Q2

REPORT INFORMATION
  Report Type: Spontaneous
  Country: US (occurrence: None)
  Receive Date: 20250613
  Receipt Date: 20250613
  Transmission Date: 20250716
  Serious: Yes (Other)
  Sender: FDA-CTU
  Company Number: None

PATIENT
  Age: 69 Year
  Sex: Female
  Weight: 36 kg

DRUGS (5)
  1. TROPICAMIDE [Suspect]
     Active Substance: TROPICAMIDE
     Indication: Pupil dilation procedure
     Dates: start: 20220601
  2. PHENYLEPHRINE [Suspect]
     Active Substance: PHENYLEPHRINE
  3. VITAMIN C [Concomitant]
     Active Substance: ASCORBIC ACID
  4. BIOTIN [Concomitant]
     Active Substance: BIOTIN
  5. VITAMINS NOS [Concomitant]
     Active Substance: VITAMINS

REACTIONS (1)
  - Therapeutic product effect prolonged [None]

NARRATIVE: CASE EVENT DATE: 20220601
